FAERS Safety Report 17591300 (Version 1)
Quarter: 2020Q1

REPORT INFORMATION
  Report Type: Spontaneous
  Country: CN (occurrence: CN)
  Receive Date: 20200327
  Receipt Date: 20200327
  Transmission Date: 20200409
  Serious: Yes (Hospitalization, Other)
  Sender: FDA-Public Use
  Company Number: CN-PFIZER INC-2020128116

PATIENT
  Age: 35 Year
  Sex: Male
  Weight: 140 kg

DRUGS (3)
  1. METHOTREXATE. [Suspect]
     Active Substance: METHOTREXATE
     Indication: CHEMOTHERAPY
     Dosage: 8 G, 1X/DAY
     Route: 041
     Dates: start: 20200221, end: 20200221
  2. RUI KE AN [Concomitant]
     Indication: VEHICLE SOLUTION USE
     Dosage: 500 ML, 1X/DAY
     Route: 041
     Dates: start: 20200221, end: 20200221
  3. CALCIUM FOLINATE [Concomitant]
     Active Substance: LEUCOVORIN CALCIUM
     Dosage: UNK
     Dates: start: 20200221, end: 20200221

REACTIONS (4)
  - Oral mucosa erosion [Recovering/Resolving]
  - Bone marrow failure [Recovering/Resolving]
  - Neoplasm recurrence [Unknown]
  - Hepatic steatosis [Unknown]

NARRATIVE: CASE EVENT DATE: 2020
